FAERS Safety Report 8260059-0 (Version None)
Quarter: 2012Q2

REPORT INFORMATION
  Report Type: 
  Country: None (occurrence: None)
  Receive Date: 20120404
  Receipt Date: 20120329
  Transmission Date: 20120825
  Serious: Yes (Hospitalization)
  Sender: FDA-Public Use
  Company Number: US-INCYTE CORPORATION-2012IN000486

PATIENT
  Sex: Male

DRUGS (2)
  1. JAKAFI [Suspect]
     Indication: BLOOD DISORDER
     Dosage: 15 MG, BID
     Route: 048
     Dates: start: 20120113
  2. REVLIMID [Concomitant]

REACTIONS (1)
  - HOSPITALISATION [None]
